FAERS Safety Report 4972881-4 (Version None)
Quarter: 2006Q2

REPORT INFORMATION
  Report Type: 
  Country: None (occurrence: None)
  Receive Date: 20060414
  Receipt Date: 20060410
  Transmission Date: 20061013
  Serious: Yes (Hospitalization)
  Sender: FDA-Public Use
  Company Number: FR-AVENTIS-200613811GDDC

PATIENT
  Age: 83 Year
  Sex: Male

DRUGS (3)
  1. ROVAMYCINE [Suspect]
     Dosage: DOSE: 1500 OTH
     Route: 042
     Dates: start: 20051224, end: 20051224
  2. FLAGYL [Suspect]
     Route: 048
     Dates: start: 20051224, end: 20051225
  3. ROCEPHIN [Concomitant]
     Dosage: DOSE: UNK
     Dates: start: 20051223, end: 20051225

REACTIONS (1)
  - ANAPHYLACTIC SHOCK [None]
